FAERS Safety Report 10905913 (Version 1)
Quarter: 2015Q1

REPORT INFORMATION
  Report Type: Spontaneous
  Country: US (occurrence: None)
  Receive Date: 20150211
  Receipt Date: 20150211
  Transmission Date: 20150721
  Serious: Yes (Death, Life-Threatening, Hospitalization)
  Sender: FDA-Public Use
  Company Number: M2015-004

PATIENT
  Age: 33 Year
  Sex: Male
  Weight: 68.04 kg

DRUGS (4)
  1. MOUNTAIN CEDAR [Suspect]
     Active Substance: JUNIPERUS ASHEI POLLEN
     Indication: ANTIALLERGIC THERAPY
     Dosage: 0.1 ML OF 1:20 DILUTION???
     Dates: start: 20141119, end: 20150122
  2. OTHER MANUFACTURER^S EXTRACTS (SEE ATTACHMENT) [Suspect]
     Active Substance: ALLERGENIC EXTRACTS
     Indication: ANTIALLERGIC THERAPY
     Dosage: 0L.1 ML OF 1:20 DILUTION
     Dates: start: 20141119, end: 20150122
  3. ADVAIR HFA [Concomitant]
     Active Substance: FLUTICASONE PROPIONATE\SALMETEROL XINAFOATE
  4. ZYRTEC [Concomitant]
     Active Substance: CETIRIZINE HYDROCHLORIDE

REACTIONS (3)
  - Cardiopulmonary failure [None]
  - Anaphylactic reaction [None]
  - Coma [None]

NARRATIVE: CASE EVENT DATE: 20150122
